FAERS Safety Report 9451170 (Version 2)
Quarter: 2015Q4

REPORT INFORMATION
  Report Type: Spontaneous
  Country: IT (occurrence: IT)
  Receive Date: 20130809
  Receipt Date: 20151023
  Transmission Date: 20160305
  Serious: Yes (Other)
  Sender: FDA-Public Use
  Company Number: IT-PFIZER INC-2013231107

PATIENT
  Age: 51 Year
  Sex: Male

DRUGS (4)
  1. AUGMENTIN [Concomitant]
     Active Substance: AMOXICILLIN\CLAVULANATE POTASSIUM
     Dosage: UNK
  2. XANAX [Suspect]
     Active Substance: ALPRAZOLAM
     Indication: ANXIETY
     Dosage: 0.25 MG, DAILY (1 TABLET A DAY)
     Dates: start: 2013
  3. CIPROXIN [Concomitant]
     Active Substance: CIPROFLOXACIN
     Dosage: UNK
  4. MESULID [Concomitant]
     Active Substance: NIMESULIDE
     Dosage: UNK

REACTIONS (1)
  - Orchitis [Unknown]

NARRATIVE: CASE EVENT DATE: 2013
